FAERS Safety Report 16179063 (Version 2)
Quarter: 2019Q2

REPORT INFORMATION
  Report Type: Spontaneous
  Country: US (occurrence: US)
  Receive Date: 20190410
  Receipt Date: 20190415
  Transmission Date: 20190711
  Serious: Yes (Hospitalization, Other)
  Sender: FDA-Public Use
  Company Number: US-LUPIN PHARMACEUTICALS INC.-2019-02186

PATIENT
  Age: 17 Year
  Sex: Male

DRUGS (6)
  1. SEROQUEL [Concomitant]
     Active Substance: QUETIAPINE FUMARATE
     Indication: PRODUCT USED FOR UNKNOWN INDICATION
     Dosage: UNK
     Route: 065
  2. LAMOTRIGINE. [Suspect]
     Active Substance: LAMOTRIGINE
     Indication: SUICIDE ATTEMPT
     Dosage: UNK (OVERDOSE)
     Route: 065
  3. LAMOTRIGINE. [Suspect]
     Active Substance: LAMOTRIGINE
     Dosage: UNK
     Route: 065
  4. LITHIUM. [Concomitant]
     Active Substance: LITHIUM
     Indication: PRODUCT USED FOR UNKNOWN INDICATION
     Dosage: 300 MILLIGRAM, BID
     Route: 065
  5. LITHIUM. [Concomitant]
     Active Substance: LITHIUM
     Dosage: 300 MILLIGRAM, BID
     Route: 065
  6. ASPIRIN. [Suspect]
     Active Substance: ASPIRIN
     Indication: SUICIDE ATTEMPT
     Dosage: UNK
     Route: 065

REACTIONS (6)
  - Abnormal behaviour [Unknown]
  - Thought blocking [Recovering/Resolving]
  - Cognitive disorder [Recovering/Resolving]
  - Psychomotor skills impaired [Recovering/Resolving]
  - Overdose [Unknown]
  - Dysarthria [Recovering/Resolving]
